FAERS Safety Report 7802628-5 (Version None)
Quarter: 2011Q4

REPORT INFORMATION
  Report Type: 
  Country: None (occurrence: None)
  Receive Date: 20111007
  Receipt Date: 20110922
  Transmission Date: 20120403
  Serious: Yes (Other)
  Sender: FDA-Public Use
  Company Number: PHHY2011BR84953

PATIENT
  Sex: Female

DRUGS (12)
  1. SIMVASTATIN [Concomitant]
     Dosage: 20 MG, UNK
  2. METICORTEN [Concomitant]
     Dosage: UNK
  3. IRON [Concomitant]
     Dosage: UNK
  4. DIOVAN [Suspect]
     Indication: HYPERTENSION
     Dosage: 1 DF (160MG), BID
  5. MYCOPHENOLATE MOFETIL [Concomitant]
     Dosage: UNK
  6. SERTRALINE HYDROCHLORIDE [Concomitant]
     Dosage: UNK
  7. EXFORGE [Suspect]
     Indication: HYPERTENSION
     Dosage: 1 DF (160/5 MG), UNK
  8. DIOVAN [Suspect]
     Dosage: 1 DF (320 MG)
  9. PLAQUINOL TAB [Concomitant]
     Dosage: UNK
  10. LIPITOR [Concomitant]
     Dosage: 10 MG, DAILY
  11. CALCIUM CARBONATE [Concomitant]
     Dosage: UNK
  12. EXFORGE [Suspect]
     Dosage: 1 DF(320/5 MG), UNK

REACTIONS (7)
  - RETINOPATHY [None]
  - BLOOD PRESSURE INCREASED [None]
  - DEPRESSION [None]
  - FATIGUE [None]
  - MITRAL VALVE INCOMPETENCE [None]
  - FLUSHING [None]
  - TACHYCARDIA [None]
